FAERS Safety Report 6604086-5 (Version None)
Quarter: 2010Q1

REPORT INFORMATION
  Report Type: 
  Country: None (occurrence: None)
  Receive Date: 20100226
  Receipt Date: 20090506
  Transmission Date: 20100710
  Serious: Yes (Disabling)
  Sender: FDA-Public Use
  Company Number: A0784320A

PATIENT
  Age: 45 Year
  Sex: Female

DRUGS (2)
  1. LAMICTAL CD [Suspect]
     Indication: DRUG USE FOR UNKNOWN INDICATION
     Route: 048
     Dates: start: 20090201, end: 20090201
  2. UNKNOWN [Concomitant]

REACTIONS (4)
  - ORAL DISORDER [None]
  - SKIN EXFOLIATION [None]
  - SKIN REACTION [None]
  - STEVENS-JOHNSON SYNDROME [None]
